FAERS Safety Report 9121244 (Version 1)
Quarter: 2013Q1

REPORT INFORMATION
  Report Type: Spontaneous
  Country: US (occurrence: US)
  Receive Date: 20130227
  Receipt Date: 20130227
  Transmission Date: 20140127
  Serious: Yes (Other)
  Sender: FDA-Public Use
  Company Number: US-AMGEN-USASP2013013119

PATIENT
  Age: 41 Year
  Sex: Female

DRUGS (2)
  1. ENBREL [Suspect]
     Indication: RHEUMATOID ARTHRITIS
     Dosage: 50 MG, QWK
     Dates: start: 20120227
  2. ENBREL [Suspect]
     Indication: PSORIASIS

REACTIONS (3)
  - Rib fracture [Recovered/Resolved]
  - Respiratory tract infection [Recovered/Resolved]
  - Pertussis [Recovered/Resolved]
